FAERS Safety Report 8362508-6 (Version None)
Quarter: 2012Q2

REPORT INFORMATION
  Report Type: 
  Country: None (occurrence: None)
  Receive Date: 20120514
  Receipt Date: 20120503
  Transmission Date: 20120825
  Serious: Yes (Life-Threatening, Hospitalization)
  Sender: FDA-Public Use
  Company Number: E2B_7130046

PATIENT
  Age: 81 Year
  Sex: Female

DRUGS (6)
  1. WARFARIN SODIUM [Suspect]
     Indication: ATRIAL FIBRILLATION
     Dosage: (1 D) ORAL
     Route: 048
     Dates: start: 20070101, end: 20090728
  2. OMEPRAZOLE [Suspect]
     Indication: PROPHYLAXIS
     Dosage: (1 D) ORAL
     Route: 048
  3. PRAVASTATIN SODIUM [Suspect]
     Indication: HYPERLIPIDAEMIA
     Dosage: (1 D), ORAL
     Route: 048
     Dates: end: 20090728
  4. LEVOTHYROXINE SODIUM [Suspect]
     Indication: HYPOTHYROIDISM
     Dosage: (1 D) ORAL YEARS
     Route: 048
  5. MICARDIS [Concomitant]
  6. ACETYLSALICYLIC ACID SRT [Suspect]
     Indication: ISCHAEMIC CARDIOMYOPATHY
     Dosage: (1 D) ORAL
     Route: 048
     Dates: start: 20071101, end: 20090728

REACTIONS (6)
  - BLOOD PRESSURE SYSTOLIC INCREASED [None]
  - HAEMATOCRIT DECREASED [None]
  - LOWER GASTROINTESTINAL HAEMORRHAGE [None]
  - RECTAL HAEMORRHAGE [None]
  - HAEMORRHOIDS [None]
  - DRUG INTERACTION [None]
